FAERS Safety Report 16276625 (Version 2)
Quarter: 2019Q2

REPORT INFORMATION
  Report Type: Spontaneous
  Country: US (occurrence: US)
  Receive Date: 20190506
  Receipt Date: 20190521
  Transmission Date: 20190711
  Serious: No
  Sender: FDA-Public Use
  Company Number: US-PFIZER INC-2019184708

PATIENT
  Age: 61 Year
  Sex: Female

DRUGS (2)
  1. GENOTROPIN MQ [Suspect]
     Active Substance: SOMATROPIN
     Dosage: 1.6 MG, DAILY
  2. GENOTROPIN MQ [Suspect]
     Active Substance: SOMATROPIN
     Dosage: UNK [DOUBLE UP ON DAY ONE THEN DAY TWO AND THEN DAY 5]

REACTIONS (3)
  - Malaise [Unknown]
  - Prescribed overdose [Unknown]
  - Product dose omission [Unknown]
